FAERS Safety Report 24565444 (Version 2)
Quarter: 2025Q4

REPORT INFORMATION
  Report Type: Spontaneous
  Country: EU (occurrence: EU)
  Receive Date: 20241030
  Receipt Date: 20251030
  Transmission Date: 20260118
  Serious: Yes (Other)
  Sender: RANBAXY
  Company Number: EU-AFSSAPS-LM2024000513

PATIENT
  Age: 45 Year
  Sex: Female

DRUGS (11)
  1. VENLAFAXINE [Suspect]
     Active Substance: VENLAFAXINE HYDROCHLORIDE
     Indication: Depression
     Dosage: 37.5 MILLIGRAM, DAILY
     Route: 048
     Dates: start: 20240816, end: 20240822
  2. VENLAFAXINE [Suspect]
     Active Substance: VENLAFAXINE HYDROCHLORIDE
     Route: 048
     Dates: start: 20240822
  3. LAMOTRIGINE [Concomitant]
     Active Substance: LAMOTRIGINE
     Indication: Product used for unknown indication
     Dosage: UNK
     Route: 065
  4. CYAMEMAZINE [Concomitant]
     Active Substance: CYAMEMAZINE
     Indication: Product used for unknown indication
     Dosage: UNK
     Route: 065
  5. LANSOPRAZOLE [Concomitant]
     Active Substance: LANSOPRAZOLE
     Indication: Product used for unknown indication
     Dosage: UNK
     Route: 065
  6. NALTREXONE [Concomitant]
     Active Substance: NALTREXONE
     Indication: Product used for unknown indication
     Dosage: UNK
     Route: 065
  7. QUETIAPINE [Concomitant]
     Active Substance: QUETIAPINE
     Indication: Product used for unknown indication
     Dosage: UNK
     Route: 065
  8. TRIMEBUTINE [Concomitant]
     Active Substance: TRIMEBUTINE
     Indication: Product used for unknown indication
     Dosage: UNK
     Route: 065
  9. ACETAMINOPHEN [Concomitant]
     Active Substance: ACETAMINOPHEN
     Indication: Product used for unknown indication
     Dosage: UNK
     Route: 065
  10. MONTMORILLONITE [Concomitant]
     Active Substance: MONTMORILLONITE
     Indication: Product used for unknown indication
     Dosage: UNK
     Route: 065
  11. POLYETHYLENE GLYCOL 4000 [Concomitant]
     Active Substance: POLYETHYLENE GLYCOL 4000
     Indication: Product used for unknown indication
     Dosage: UNK
     Route: 065

REACTIONS (1)
  - Ecchymosis [Not Recovered/Not Resolved]

NARRATIVE: CASE EVENT DATE: 20240826
